FAERS Safety Report 15269994 (Version 3)
Quarter: 2018Q3

REPORT INFORMATION
  Report Type: Spontaneous
  Country: US (occurrence: US)
  Receive Date: 20180813
  Receipt Date: 20180817
  Transmission Date: 20181010
  Serious: No
  Sender: FDA-Public Use
  Company Number: US-PFIZER INC-2018323708

PATIENT
  Sex: Female

DRUGS (4)
  1. METHOTREXATE SODIUM. [Suspect]
     Active Substance: METHOTREXATE SODIUM
     Dosage: 0.6 MG, WEEKLY
     Route: 058
     Dates: start: 201706, end: 201802
  2. MEDROL [Suspect]
     Active Substance: METHYLPREDNISOLONE
     Dosage: UNK
  3. FOLIC ACID. [Suspect]
     Active Substance: FOLIC ACID
     Dosage: 1 MG, UNK
  4. MOBIC [Suspect]
     Active Substance: MELOXICAM
     Dosage: UNK

REACTIONS (3)
  - Nausea [Unknown]
  - Malaise [Unknown]
  - Fatigue [Unknown]
